FAERS Safety Report 10251366 (Version 1)
Quarter: 2014Q2

REPORT INFORMATION
  Report Type: Spontaneous
  Country: PL (occurrence: PL)
  Receive Date: 20140622
  Receipt Date: 20140622
  Transmission Date: 20141212
  Serious: Yes (Other)
  Sender: FDA-Public Use
  Company Number: PHHY2014PL073635

PATIENT
  Age: 58 Year
  Sex: Female
  Weight: 78 kg

DRUGS (1)
  1. METHOTREXATE [Suspect]
     Indication: RHEUMATOID ARTHRITIS
     Dosage: 15 MG, QW
     Route: 048
     Dates: start: 20100429, end: 20100620

REACTIONS (1)
  - Mucosal necrosis [Recovered/Resolved]
